FAERS Safety Report 8785981 (Version 2)
Quarter: 2012Q4

REPORT INFORMATION
  Report Type: 
  Country: AU (occurrence: AU)
  Receive Date: 20120914
  Receipt Date: 20120927
  Transmission Date: 20130627
  Serious: Yes (Life-Threatening, Disabling, Other)
  Sender: FDA-Public Use
  Company Number: PHHY2012AU079760

PATIENT
  Age: 71 Year
  Sex: Male

DRUGS (7)
  1. ACLASTA [Suspect]
     Indication: OSTEOPOROSIS
     Dosage: 5 mg, yearly
     Route: 042
     Dates: start: 20100629
  2. ACLASTA [Suspect]
     Dosage: 5 mg, yearly
     Route: 042
     Dates: start: 20110802
  3. LIPITOR [Concomitant]
     Indication: HYPERLIPIDAEMIA
     Dosage: 40 mg, once a daily
     Route: 048
  4. MINAX [Concomitant]
     Indication: MYOCARDIAL ISCHAEMIA
     Dosage: 50 mg, half dosing twice daily
     Route: 048
  5. OSTELIN [Concomitant]
     Indication: VITAMIN D DEFICIENCY
     Dosage: 1000 iu daily
     Route: 048
  6. NEXIUM [Concomitant]
     Indication: GASTROOESOPHAGEAL REFLUX DISEASE
     Dosage: 40 mg, once daily
     Route: 048
  7. CLINDAMYCIN [Concomitant]
     Indication: DEVICE RELATED INFECTION
     Dosage: 150 mg, two tablets twice daily
     Route: 048

REACTIONS (9)
  - Joint injury [Unknown]
  - Weight bearing difficulty [Unknown]
  - Acetabulum fracture [Unknown]
  - Thoracic vertebral fracture [Unknown]
  - Rib fracture [Unknown]
  - Fall [Unknown]
  - Gamma-glutamyltransferase increased [Unknown]
  - White blood cell count decreased [Unknown]
  - Platelet count decreased [Unknown]
